FAERS Safety Report 13441067 (Version 2)
Quarter: 2017Q3

REPORT INFORMATION
  Report Type: Spontaneous
  Country: DE (occurrence: DE)
  Receive Date: 20170413
  Receipt Date: 20170719
  Transmission Date: 20171127
  Serious: Yes (Other)
  Sender: FDA-Public Use
  Company Number: PHHY2017DE049917

PATIENT
  Sex: Male
  Weight: 79 kg

DRUGS (3)
  1. GILENYA [Suspect]
     Active Substance: FINGOLIMOD HYDROCHLORIDE
     Indication: RELAPSING-REMITTING MULTIPLE SCLEROSIS
     Dosage: 0.5 MG, QD
     Route: 048
     Dates: start: 20160905, end: 20161008
  2. RAMIPRIL. [Concomitant]
     Active Substance: RAMIPRIL
     Indication: HYPERTENSION
     Dosage: 5 MG, QD
     Route: 048
     Dates: start: 201307
  3. VIVEO [Concomitant]
     Indication: MUSCLE SPASTICITY
     Dosage: 150 MG, ONCE/ TWICE DAILY
     Route: 048
     Dates: start: 2009

REACTIONS (4)
  - Hilar lymphadenopathy [Recovering/Resolving]
  - Lymphocyte count decreased [Recovering/Resolving]
  - Angina pectoris [Recovered/Resolved]
  - Lymphadenopathy mediastinal [Recovering/Resolving]

NARRATIVE: CASE EVENT DATE: 20161008
